FAERS Safety Report 16229074 (Version 1)
Quarter: 2019Q2

REPORT INFORMATION
  Report Type: Report from Study
  Country: DE (occurrence: DE)
  Receive Date: 20190423
  Receipt Date: 20190423
  Transmission Date: 20190711
  Serious: Yes (Hospitalization, Other)
  Sender: FDA-Public Use
  Company Number: DE-JNJFOC-20190420933

PATIENT
  Age: 6 Decade
  Sex: Female
  Weight: 94 kg

DRUGS (1)
  1. STELARA [Suspect]
     Active Substance: USTEKINUMAB
     Indication: CROHN^S DISEASE
     Route: 042
     Dates: start: 20190314

REACTIONS (5)
  - Nausea [Unknown]
  - Gastrointestinal endoscopic therapy [Unknown]
  - Intestinal resection [Unknown]
  - Abdominal pain [Unknown]
  - General physical health deterioration [Unknown]
